FAERS Safety Report 22161385 (Version 1)
Quarter: 2023Q1

REPORT INFORMATION
  Report Type: Report from Study
  Country: US (occurrence: US)
  Receive Date: 20230331
  Receipt Date: 20230331
  Transmission Date: 20230418
  Serious: Yes (Hospitalization)
  Sender: FDA-Public Use
  Company Number: US-PFIZER INC-202300125863

PATIENT
  Age: 64 Year
  Sex: Female

DRUGS (14)
  1. INOTUZUMAB OZOGAMICIN [Suspect]
     Active Substance: INOTUZUMAB OZOGAMICIN
     Indication: Acute lymphocytic leukaemia
     Dosage: 0.3 MG/M2, REGIMEN A:OVER 1 HOUR ON DAYS 2 AND 8 OF CYCLES 1 AND 3 (APPROXIMATE)
     Route: 042
     Dates: start: 20220811
  2. INOTUZUMAB OZOGAMICIN [Suspect]
     Active Substance: INOTUZUMAB OZOGAMICIN
     Dosage: 0.3 MG/M2, REGIMEN B:ON DAYS 2 AND 8 OF CYCLES 2 AND 4 (APPROXIMATE)
     Route: 042
  3. VINCRISTINE SULFATE [Suspect]
     Active Substance: VINCRISTINE SULFATE
     Dosage: REGIMEN A: 2MG, DAY 1 AND DAY 8 (APPROXIMATE)
     Route: 042
  4. RITUXIMAB [Suspect]
     Active Substance: RITUXIMAB
     Dosage: REGIMEN A: 375MG/M2 ON DAY 2 AND DAY 8 OF CYCLES 1 AND 3
     Route: 042
  5. RITUXIMAB [Suspect]
     Active Substance: RITUXIMAB
     Dosage: REGIMEN B: 375 MG/M2 ON DAY 2 AND 8 OF CYCLES 2 AND 4.
     Route: 042
  6. METHOTREXATE SODIUM [Suspect]
     Active Substance: METHOTREXATE SODIUM
     Dosage: REGIMEN B: 50 MG/M2 OVER 2HRS ON DAY 1 THEN
     Route: 042
  7. METHOTREXATE SODIUM [Suspect]
     Active Substance: METHOTREXATE SODIUM
     Dosage: REGIMEN B: 200 MG/M2 CONTINUOUS INFUSION OVER 22 HOURS ON DAY 1
     Route: 042
  8. CYTARABINE [Suspect]
     Active Substance: CYTARABINE
     Dosage: REGIMEN B: 0.5 G/M2 OVER 3 HOURS TWICE A DAY X 4 DOSES ON DAYS 2 AND 3.
     Route: 042
  9. MESNA [Suspect]
     Active Substance: MESNA
     Dosage: REGIMEN A: 300MG/M2, DAILY OVER 24 HOURS FOR 3 DAYS ON DAYS 1-3
     Route: 042
  10. CYCLOPHOSPHAMIDE [Suspect]
     Active Substance: CYCLOPHOSPHAMIDE
     Dosage: REGIMEN A: 150MG/M2, OVER 3 HOURS TWICE A DAY ON DAYS 1-3
     Route: 042
  11. DEXAMETHASONE [Suspect]
     Active Substance: DEXAMETHASONE
     Dosage: REGIMEN A: 20MG, DAILY FOR 4 DAYS ON DAYS 1-4 AND DAYS 11-14 (APPROXIMATE)
     Route: 042
  12. BLINATUMOMAB [Suspect]
     Active Substance: BLINATUMOMAB
     Dosage: REGIMEN C: 9U/DAY CONTINUOUS INFUSION DAYS 1-4 (CYCLE 5 ONLY)
  13. BLINATUMOMAB [Suspect]
     Active Substance: BLINATUMOMAB
     Dosage: REGIMEN C: 28UG/DAY CONTINUOUS INFUSION DAYS 4-29 (CYCLE 5 ONLY)
  14. BLINATUMOMAB [Suspect]
     Active Substance: BLINATUMOMAB
     Dosage: REGIMEN C: 28UG/DAY CONTINUOUS INFUSION DAYS 1-29 (CYCLES 6, 11 AND 12)

REACTIONS (1)
  - Cytokine release syndrome [Recovered/Resolved]

NARRATIVE: CASE EVENT DATE: 20230120
